FAERS Safety Report 9426577 (Version 1)
Quarter: 2013Q3

REPORT INFORMATION
  Report Type: Spontaneous
  Country: US (occurrence: US)
  Receive Date: 20130730
  Receipt Date: 20130730
  Transmission Date: 20140515
  Serious: No
  Sender: FDA-Public Use
  Company Number: US-PFIZER INC-2013220125

PATIENT
  Sex: 0

DRUGS (1)
  1. CHANTIX [Suspect]
     Indication: SMOKING CESSATION THERAPY
     Dosage: UNK

REACTIONS (6)
  - Nightmare [Recovered/Resolved]
  - Abnormal dreams [Recovered/Resolved]
  - Depressed mood [Recovered/Resolved]
  - Crying [Recovered/Resolved]
  - Mood swings [Recovered/Resolved]
  - Tobacco withdrawal symptoms [Recovered/Resolved]
